FAERS Safety Report 4820821-0 (Version None)
Quarter: 2005Q4

REPORT INFORMATION
  Report Type: 
  Country: None (occurrence: None)
  Receive Date: 20051104
  Receipt Date: 20050414
  Transmission Date: 20060501
  Serious: Yes (Other)
  Sender: FDA-Public Use
  Company Number: US-MERCK-0504USA02836

PATIENT
  Age: 72 Year
  Sex: Female
  Weight: 82 kg

DRUGS (5)
  1. VIOXX [Suspect]
     Indication: ARTHRALGIA
     Route: 048
     Dates: start: 19990501, end: 20010801
  2. VIOXX [Suspect]
     Route: 048
     Dates: start: 20020101
  3. VIOXX [Suspect]
     Indication: OSTEOARTHRITIS
     Route: 048
     Dates: start: 19990501, end: 20010801
  4. VIOXX [Suspect]
     Route: 048
     Dates: start: 20020101
  5. CARDURA [Concomitant]
     Route: 048
     Dates: start: 19980101, end: 20000101

REACTIONS (17)
  - ASTHENIA [None]
  - CEREBROVASCULAR ACCIDENT [None]
  - CONVULSION [None]
  - DIZZINESS [None]
  - FALL [None]
  - GALLBLADDER DISORDER [None]
  - GOUT [None]
  - HEADACHE [None]
  - INJURY [None]
  - MYOCARDIAL INFARCTION [None]
  - OESOPHAGEAL DISORDER [None]
  - OSTEOARTHRITIS [None]
  - REFLUX GASTRITIS [None]
  - RHEUMATOID ARTHRITIS [None]
  - SLEEP APNOEA SYNDROME [None]
  - SYNCOPE [None]
  - TRANSIENT ISCHAEMIC ATTACK [None]
